FAERS Safety Report 21652834 (Version 1)
Quarter: 2022Q4

REPORT INFORMATION
  Report Type: Spontaneous
  Country: US (occurrence: None)
  Receive Date: 20221125
  Receipt Date: 20221125
  Transmission Date: 20230113
  Serious: Yes (Other)
  Sender: FDA-Public Use
  Company Number: None

PATIENT
  Sex: Female

DRUGS (1)
  1. STELARA [Suspect]
     Active Substance: USTEKINUMAB
     Indication: Crohn^s disease
     Dosage: 90 MG  Q8WKS SUBCUTANEOUS?? INJECT 90MG UNDER THE SKIN INTO THE APPROPRIATE AREA AS DIRECTED EVERY 8
     Route: 058
     Dates: end: 2022

REACTIONS (1)
  - Skin cancer [None]
